FAERS Safety Report 17044116 (Version 1)
Quarter: 2019Q4

REPORT INFORMATION
  Report Type: Spontaneous
  Country: GB (occurrence: GB)
  Receive Date: 20191118
  Receipt Date: 20191118
  Transmission Date: 20200122
  Serious: Yes (Other)
  Sender: FDA-Public Use
  Company Number: GB-009507513-1911GBR004079

PATIENT
  Age: 39 Year
  Sex: Female

DRUGS (12)
  1. MORPHINE [Concomitant]
     Active Substance: MORPHINE
     Dosage: 20 MILLIGRAM, QD
     Route: 048
  2. ADCAL-D3 [Concomitant]
     Active Substance: CALCIUM CARBONATE\CHOLECALCIFEROL
     Dosage: 2 DOSAGE FORM, QD
     Route: 048
  3. PENICILLIN V [Concomitant]
     Active Substance: PENICILLIN V
     Dosage: 500 MILLIGRAM, QD
     Route: 048
  4. MEROPENEM. [Concomitant]
     Active Substance: MEROPENEM
     Dosage: 2000 MILLIGRAM, QD
     Route: 042
  5. CASPOFUNGIN ACETATE. [Suspect]
     Active Substance: CASPOFUNGIN ACETATE
     Indication: ANTIFUNGAL TREATMENT
     Dosage: 50 MILLIGRAM, QD, POWDER FOR SOLUTION FOR INFUSION, VIALS
     Route: 042
     Dates: start: 20190213
  6. MAGNESIUM OXIDE. [Concomitant]
     Active Substance: MAGNESIUM OXIDE
     Dosage: 480 MILLIGRAM, QD
     Route: 048
  7. ACYCLOVIR. [Concomitant]
     Active Substance: ACYCLOVIR
     Dosage: 3200 MG, QD
     Route: 048
  8. AMILORIDE [Concomitant]
     Active Substance: AMILORIDE
     Dosage: 10 MILLIGRAM, QAM, ON MORNING
     Route: 048
  9. OMEPRAZOLE. [Concomitant]
     Active Substance: OMEPRAZOLE
     Dosage: 20 MILLIGRAM, QAM, ON MORNING
     Route: 048
  10. CIPROFLOXACIN. [Concomitant]
     Active Substance: CIPROFLOXACIN
     Dosage: 50 MILLIGRAM, QD
     Route: 048
  11. NYSTATIN. [Concomitant]
     Active Substance: NYSTATIN
     Dosage: 4 MILLILITER, QD, 10,000UNITS/ML
     Route: 048
  12. NEORAL [Interacting]
     Active Substance: CYCLOSPORINE
     Dosage: 80 MILLIGRAM, QD
     Route: 048

REACTIONS (3)
  - Alanine aminotransferase increased [Recovering/Resolving]
  - Blood alkaline phosphatase increased [Unknown]
  - Drug interaction [Unknown]

NARRATIVE: CASE EVENT DATE: 20190227
